FAERS Safety Report 22920886 (Version 2)
Quarter: 2023Q4

REPORT INFORMATION
  Report Type: Spontaneous
  Country: JP (occurrence: JP)
  Receive Date: 20230908
  Receipt Date: 20231027
  Transmission Date: 20240109
  Serious: Yes (Death)
  Sender: FDA-Public Use
  Company Number: JP-CHUGAI-2023030611

PATIENT
  Age: 77 Year
  Sex: Male
  Weight: 75.6 kg

DRUGS (9)
  1. TECENTRIQ [Suspect]
     Active Substance: ATEZOLIZUMAB
     Indication: Lung adenocarcinoma
     Route: 041
     Dates: start: 20230614, end: 20230712
  2. AVASTIN [Suspect]
     Active Substance: BEVACIZUMAB
     Indication: Lung adenocarcinoma
     Route: 041
     Dates: start: 20230614
  3. CARBOPLATIN [Concomitant]
     Active Substance: CARBOPLATIN
     Indication: Lung adenocarcinoma
     Dosage: UNK
     Route: 041
  4. PACLITAXEL [Concomitant]
     Active Substance: PACLITAXEL
     Indication: Lung adenocarcinoma
     Dosage: UNK
     Route: 041
  5. BEVACIZUMAB BIOSIMILAR 2 [Concomitant]
     Indication: Lung adenocarcinoma
     Dates: start: 20230614, end: 20230712
  6. AMLODIPINE BESYLATE [Concomitant]
     Active Substance: AMLODIPINE BESYLATE
  7. TELMISARTAN [Concomitant]
     Active Substance: TELMISARTAN
  8. DEXAMETHASONE SODIUM PHOSPHATE [Concomitant]
     Active Substance: DEXAMETHASONE SODIUM PHOSPHATE
  9. FAMOTIDINE [Concomitant]
     Active Substance: FAMOTIDINE

REACTIONS (2)
  - Myasthenia gravis [Fatal]
  - Myositis [Fatal]

NARRATIVE: CASE EVENT DATE: 20230808
